FAERS Safety Report 17963162 (Version 1)
Quarter: 2020Q2

REPORT INFORMATION
  Report Type: Report from Study
  Country: None (occurrence: US)
  Receive Date: 20200630
  Receipt Date: 20200630
  Transmission Date: 20200714
  Serious: No
  Sender: FDA-Public Use
  Company Number: US-BIOVITRUM-2020US0516

PATIENT
  Sex: Female

DRUGS (2)
  1. KINERET [Suspect]
     Active Substance: ANAKINRA
     Indication: RHEUMATOID ARTHRITIS
     Route: 058
     Dates: start: 20191210
  2. KINERET [Suspect]
     Active Substance: ANAKINRA
     Dates: start: 20191211

REACTIONS (6)
  - Foot fracture [Unknown]
  - Injection site pain [Unknown]
  - Alopecia [Unknown]
  - Pain [Unknown]
  - Photophobia [Unknown]
  - Headache [Unknown]
